FAERS Safety Report 17749949 (Version 1)
Quarter: 2020Q2

REPORT INFORMATION
  Report Type: Report from Study
  Country: BR (occurrence: BR)
  Receive Date: 20200506
  Receipt Date: 20200506
  Transmission Date: 20200714
  Serious: Yes (Hospitalization, Other)
  Sender: FDA-Public Use
  Company Number: NVSC2020BR121809

PATIENT
  Age: 71 Year
  Sex: Male

DRUGS (1)
  1. ENTRESTO [Suspect]
     Active Substance: SACUBITRIL\VALSARTAN
     Indication: CARDIAC FAILURE
     Dosage: 49/51 MG
     Route: 065
     Dates: start: 20191124

REACTIONS (10)
  - Pulmonary oedema [Unknown]
  - Cardiac disorder [Recovered/Resolved with Sequelae]
  - Peripheral swelling [Unknown]
  - Mediastinitis [Unknown]
  - Asthenia [Recovered/Resolved with Sequelae]
  - Gait disturbance [Recovered/Resolved with Sequelae]
  - Haemorrhage [Unknown]
  - Thrombosis [Unknown]
  - Necrosis [Not Recovered/Not Resolved]
  - Pleural effusion [Unknown]

NARRATIVE: CASE EVENT DATE: 201911
